FAERS Safety Report 9753676 (Version 2)
Quarter: 2014Q1

REPORT INFORMATION
  Report Type: Report from Study
  Country: JP (occurrence: JP)
  Receive Date: 20131213
  Receipt Date: 20140123
  Transmission Date: 20141002
  Serious: Yes (Hospitalization)
  Sender: FDA-Public Use
  Company Number: JP-NAPPMUNDI-GBR-2013-0016505

PATIENT
  Age: 82 Year
  Sex: Male
  Weight: 62 kg

DRUGS (3)
  1. BTDS 5 MG [Suspect]
     Indication: ANALGESIC THERAPY
     Dosage: 5 MCG, Q1H
     Route: 062
     Dates: start: 20130208, end: 20130215
  2. LOXONIN [Concomitant]
     Indication: ANALGESIC THERAPY
     Dosage: 180 MG, DAILY
     Route: 048
     Dates: start: 20130119, end: 20130214
  3. VOLTAREN                           /00372301/ [Concomitant]
     Indication: PROCTALGIA
     Dosage: 50 MG, 10 TIMES A WEEK PRN
     Route: 048
     Dates: start: 20130126

REACTIONS (1)
  - Femoral neck fracture [Recovering/Resolving]
